FAERS Safety Report 5923160-X (Version None)
Quarter: 2008Q4

REPORT INFORMATION
  Report Type: 
  Country: None (occurrence: None)
  Receive Date: 20081020
  Receipt Date: 20081010
  Transmission Date: 20090506
  Serious: Yes (Death, Life-Threatening, Hospitalization, Other)
  Sender: FDA-Public Use
  Company Number: JP-ELI_LILLY_AND_COMPANY-JP200805003476

PATIENT
  Sex: Male
  Weight: 47.3 kg

DRUGS (17)
  1. PEMETREXED [Suspect]
     Indication: PLEURAL MESOTHELIOMA MALIGNANT
     Dosage: 730 MG, OTHER
     Route: 042
     Dates: start: 20071203, end: 20071203
  2. PEMETREXED [Suspect]
     Dosage: 700 MG, OTHER
     Route: 042
     Dates: start: 20080116, end: 20080116
  3. PEMETREXED [Suspect]
     Dosage: 670 MG, OTHER
     Route: 042
     Dates: start: 20080326, end: 20080326
  4. CISPLATIN [Suspect]
     Indication: PLEURAL MESOTHELIOMA MALIGNANT
     Dosage: 110 MG, OTHER
     Route: 042
     Dates: start: 20071203, end: 20071203
  5. CISPLATIN [Suspect]
     Dosage: 100 MG, OTHER
     Route: 042
     Dates: start: 20080116, end: 20080116
  6. CISPLATIN [Suspect]
     Dosage: 80 MG, OTHER
     Route: 042
     Dates: start: 20080326, end: 20080326
  7. PANVITAN [Concomitant]
     Dosage: 1 G, DAILY (1/D)
     Route: 048
     Dates: start: 20071122, end: 20080402
  8. CYANOCOBALAMIN [Concomitant]
     Dosage: 1 MG, UNKNOWN
     Route: 030
     Dates: start: 20071122, end: 20080319
  9. LOXONIN [Concomitant]
     Indication: CANCER PAIN
     Dosage: 180 MG, DAILY (1/D)
     Route: 048
     Dates: start: 20071114, end: 20080402
  10. MUCOSTA [Concomitant]
     Indication: PROPHYLAXIS
     Dosage: 300 MG, DAILY (1/D)
     Route: 048
     Dates: start: 20071114, end: 20080402
  11. VOLTAREN /00372301/ [Concomitant]
     Indication: CANCER PAIN
     Dosage: 25 MG, DAILY (1/D)
     Route: 054
     Dates: start: 20071126, end: 20080402
  12. OMEPRAZOLE [Concomitant]
     Indication: PROPHYLAXIS
     Dosage: 20 MG, DAILY (1/D)
     Route: 048
     Dates: start: 20071127, end: 20080402
  13. OXYCONTIN [Concomitant]
     Indication: CANCER PAIN
     Dosage: 10 MG, DAILY (1/D)
     Route: 048
     Dates: start: 20071127, end: 20080402
  14. NOVAMIN [Concomitant]
     Indication: PROPHYLAXIS
     Dosage: 15 MG, DAILY (1/D)
     Route: 048
     Dates: start: 20071127, end: 20080402
  15. MAGMITT [Concomitant]
     Indication: PROPHYLAXIS
     Dosage: 990 MG, DAILY (1/D)
     Route: 048
     Dates: start: 20071127, end: 20080402
  16. ADALAT CR /SCH/ [Concomitant]
     Dosage: 40 MG, DAILY (1/D)
     Route: 048
     Dates: start: 20071204, end: 20080402
  17. FENTANYL CITRATE [Concomitant]
     Indication: CANCER PAIN
     Dosage: 2.5 MG, DAILY (1/D)
     Route: 061
     Dates: start: 20080331

REACTIONS (15)
  - DEMENTIA [None]
  - DEPRESSED LEVEL OF CONSCIOUSNESS [None]
  - GASTROINTESTINAL INFECTION [None]
  - HAEMATOCHEZIA [None]
  - HYPERTENSION [None]
  - ILEUS PARALYTIC [None]
  - MALIGNANT NEOPLASM PROGRESSION [None]
  - MELAENA [None]
  - PANCYTOPENIA [None]
  - PLEURAL MESOTHELIOMA MALIGNANT [None]
  - RENAL IMPAIRMENT [None]
  - RESTLESSNESS [None]
  - SOMNOLENCE [None]
  - VOMITING [None]
  - WEIGHT DECREASED [None]
